FAERS Safety Report 7227110-8 (Version None)
Quarter: 2011Q1

REPORT INFORMATION
  Report Type: 
  Country: None (occurrence: None)
  Receive Date: 20110114
  Receipt Date: 20110110
  Transmission Date: 20110831
  Serious: Yes (Hospitalization)
  Sender: FDA-Public Use
  Company Number: SE-ROCHE-752188

PATIENT
  Age: 71 Year
  Sex: Male

DRUGS (3)
  1. METHOTREXATE [Concomitant]
     Route: 048
  2. IPREN [Concomitant]
     Route: 048
  3. ROACTEMRA [Suspect]
     Indication: RHEUMATOID ARTHRITIS
     Dosage: DOSE:560MGN
     Route: 042
     Dates: start: 20091009, end: 20101125

REACTIONS (2)
  - PLEURISY [None]
  - PLEURAL FIBROSIS [None]
